FAERS Safety Report 8606213-7 (Version None)
Quarter: 2012Q3

REPORT INFORMATION
  Report Type: 
  Country: None (occurrence: None)
  Receive Date: 20120820
  Receipt Date: 20120810
  Transmission Date: 20120928
  Serious: Yes (Hospitalization)
  Sender: FDA-Public Use
  Company Number: US-ACTELION-A-US2008-20873

PATIENT
  Age: 36 Year
  Sex: Male

DRUGS (7)
  1. METFORMIN HCL [Concomitant]
  2. PREDNISONE [Concomitant]
  3. LASIX [Concomitant]
  4. COUMADIN [Concomitant]
  5. COMBIVENT [Concomitant]
  6. TRACLEER [Suspect]
     Indication: PULMONARY ARTERIAL HYPERTENSION
     Dosage: 62.5 MG, BID
     Route: 048
     Dates: start: 20071129
  7. FLOVENT [Concomitant]

REACTIONS (17)
  - TRACHEOSTOMY [None]
  - PNEUMONIA [None]
  - HAEMORRHAGE [None]
  - ACUTE RESPIRATORY FAILURE [None]
  - FLUID OVERLOAD [None]
  - HYPOXIA [None]
  - SINUSITIS [None]
  - MECHANICAL VENTILATION [None]
  - SINUS TACHYCARDIA [None]
  - ENDOTRACHEAL INTUBATION [None]
  - PYREXIA [None]
  - SCROTAL OEDEMA [None]
  - CELLULITIS [None]
  - OXYGEN SATURATION DECREASED [None]
  - DYSPNOEA [None]
  - RESPIRATORY ACIDOSIS [None]
  - PCO2 INCREASED [None]
